FAERS Safety Report 7851355 (Version 4)
Quarter: 2013Q1

REPORT INFORMATION
  Report Type: Report from Study
  Country: FR (occurrence: BR)
  Receive Date: 20110310
  Receipt Date: 20130221
  Transmission Date: 20140127
  Serious: Yes (Hospitalization, Other)
  Sender: FDA-Public Use
  Company Number: BR-GILEAD-2011-0036997

PATIENT
  Age: 33 Year
  Sex: Male

DRUGS (11)
  1. TENOFOVIR DISOPROXIL FUMARATE [Suspect]
     Indication: HIV INFECTION
     Dates: start: 20110210
  2. LAMIVUDINE [Suspect]
     Indication: HIV INFECTION
     Dates: start: 20110210
  3. RALTEGRAVIR [Suspect]
     Indication: HIV INFECTION
     Dates: start: 20110210
  4. AZITHROMYCIN [Concomitant]
     Indication: SINUSITIS
     Dates: start: 20110217
  5. DEXCHLORPHENIRAMINE [Concomitant]
     Indication: SINUSITIS
     Dates: start: 20110217
  6. POTASSIUM DICLOFENAC [Concomitant]
     Indication: SINUSITIS
     Dates: start: 20110217
  7. RIFAMPICIN [Concomitant]
     Indication: TUBERCULOSIS
     Dates: start: 20101216
  8. ISONIAZID [Concomitant]
     Indication: TUBERCULOSIS
     Dates: start: 20101216
  9. PYRAZINAMIDE [Concomitant]
     Indication: TUBERCULOSIS
     Dates: start: 20101216
  10. ETHAMBUTOL [Concomitant]
     Indication: TUBERCULOSIS
     Dates: start: 20101216
  11. VITAMIN B6 [Concomitant]

REACTIONS (2)
  - Immune reconstitution inflammatory syndrome [Recovered/Resolved]
  - Sepsis [Recovered/Resolved]
